FAERS Safety Report 7646388-X (Version None)
Quarter: 2011Q3

REPORT INFORMATION
  Report Type: 
  Country: None (occurrence: None)
  Receive Date: 20110801
  Receipt Date: 20110722
  Transmission Date: 20111222
  Serious: Yes (Other)
  Sender: FDA-Public Use
  Company Number: US-JNJFOC-20110711128

PATIENT
  Sex: Female
  Weight: 47.17 kg

DRUGS (4)
  1. UNKNOWN MEDICATION [Concomitant]
     Route: 065
  2. FENTANYL [Suspect]
     Route: 062
     Dates: start: 20101101
  3. FENTANYL [Suspect]
     Indication: NECK PAIN
     Dosage: NDC#0781-7242-55
     Route: 062
     Dates: start: 20101101
  4. COUMADIN [Concomitant]
     Route: 065

REACTIONS (9)
  - FEELING OF BODY TEMPERATURE CHANGE [None]
  - PRODUCT QUALITY ISSUE [None]
  - CARDIAC PACEMAKER BATTERY REPLACEMENT [None]
  - WITHDRAWAL SYNDROME [None]
  - DRUG DOSE OMISSION [None]
  - SKIN DISCOLOURATION [None]
  - ANXIETY [None]
  - CHEST PAIN [None]
  - SWELLING [None]
